FAERS Safety Report 8364338-8 (Version None)
Quarter: 2012Q2

REPORT INFORMATION
  Report Type: 
  Country: None (occurrence: None)
  Receive Date: 20120516
  Receipt Date: 20120511
  Transmission Date: 20120825
  Serious: Yes (Death)
  Sender: FDA-Public Use
  Company Number: US-CELGENEUS-163-21880-12051506

PATIENT
  Sex: Female
  Weight: 41.768 kg

DRUGS (6)
  1. PROTONIX [Concomitant]
     Route: 065
  2. MULTI-VITAMINS [Concomitant]
     Route: 065
  3. GABAPENTIN [Concomitant]
     Route: 065
  4. REVLIMID [Suspect]
     Dosage: 5 MILLIGRAM
     Route: 048
     Dates: start: 20111216, end: 20120208
  5. CALCIUM CARBONATE [Concomitant]
     Route: 065
  6. MEGACE [Concomitant]
     Route: 065

REACTIONS (1)
  - DEATH [None]
